FAERS Safety Report 5252005-9 (Version None)
Quarter: 2007Q1

REPORT INFORMATION
  Report Type: 
  Country: None (occurrence: None)
  Receive Date: 20070223
  Receipt Date: 20070213
  Transmission Date: 20070707
  Serious: Yes (Life-Threatening, Hospitalization)
  Sender: FDA-Public Use
  Company Number: 20073530

PATIENT
  Sex: Female

DRUGS (1)
  1. LIORESAL [Suspect]
     Indication: MUSCLE SPASTICITY
     Dosage: MCG, DAILY, INTRATHECAL
     Route: 037

REACTIONS (10)
  - BODY TEMPERATURE INCREASED [None]
  - CATHETER RELATED COMPLICATION [None]
  - DYSKINESIA [None]
  - HYPERTONIA [None]
  - IRRITABILITY [None]
  - MUSCLE SPASTICITY [None]
  - POST PROCEDURAL PNEUMONIA [None]
  - SCAR [None]
  - SCRATCH [None]
  - SEDATION [None]
